APPROVED DRUG PRODUCT: BUTALBITAL, ASPIRIN AND CAFFEINE
Active Ingredient: ASPIRIN; BUTALBITAL; CAFFEINE
Strength: 325MG;50MG;40MG
Dosage Form/Route: TABLET;ORAL
Application: A089448 | Product #001
Applicant: HALSEY DRUG CO INC
Approved: Dec 1, 1986 | RLD: No | RS: No | Type: DISCN